FAERS Safety Report 16001316 (Version 5)
Quarter: 2019Q4

REPORT INFORMATION
  Report Type: Spontaneous
  Country: US (occurrence: US)
  Receive Date: 20190225
  Receipt Date: 20191206
  Transmission Date: 20200122
  Serious: Yes (Death, Other)
  Sender: FDA-Public Use
  Company Number: US-ASTRAZENECA-2019SE10575

PATIENT
  Age: 75 Year
  Sex: Male

DRUGS (55)
  1. PRILOSEC [Suspect]
     Active Substance: OMEPRAZOLE MAGNESIUM
     Indication: GASTROOESOPHAGEAL REFLUX DISEASE
     Route: 048
     Dates: start: 19990101
  2. PREDNISONE. [Concomitant]
     Active Substance: PREDNISONE
     Route: 048
     Dates: start: 20120104
  3. CRESTOR [Concomitant]
     Active Substance: ROSUVASTATIN CALCIUM
     Dates: start: 2012, end: 2014
  4. GLUCOTROL XL [Concomitant]
     Active Substance: GLIPIZIDE
     Dates: start: 2012, end: 2014
  5. ULORIC [Concomitant]
     Active Substance: FEBUXOSTAT
     Dates: start: 2012, end: 2016
  6. LORTAB [Concomitant]
     Active Substance: ACETAMINOPHEN\HYDROCODONE BITARTRATE
     Dates: start: 2013
  7. ALBUTEROL. [Concomitant]
     Active Substance: ALBUTEROL
     Dates: start: 2015, end: 2016
  8. FUROSEMIDE. [Concomitant]
     Active Substance: FUROSEMIDE
     Dates: start: 2016
  9. PRILOSEC [Suspect]
     Active Substance: OMEPRAZOLE MAGNESIUM
     Indication: GASTROOESOPHAGEAL REFLUX DISEASE
     Route: 048
  10. PRILOSEC [Suspect]
     Active Substance: OMEPRAZOLE MAGNESIUM
     Indication: GASTROOESOPHAGEAL REFLUX DISEASE
     Dosage: ONCE A DAY, GENERIC
     Route: 065
  11. LASIX [Concomitant]
     Active Substance: FUROSEMIDE
     Dates: start: 2012, end: 2016
  12. CARVEDILOL. [Concomitant]
     Active Substance: CARVEDILOL
  13. LEVAQUIN [Concomitant]
     Active Substance: LEVOFLOXACIN
     Dates: start: 2014
  14. LEVAQUIN [Concomitant]
     Active Substance: LEVOFLOXACIN
     Dates: start: 2016
  15. SPIRONOLACTONE. [Concomitant]
     Active Substance: SPIRONOLACTONE
     Dates: start: 2012, end: 2016
  16. DOXYCYCLINE HYCLATE. [Concomitant]
     Active Substance: DOXYCYCLINE HYCLATE
     Dates: start: 2012
  17. SYMBICORT [Concomitant]
     Active Substance: BUDESONIDE\FORMOTEROL FUMARATE DIHYDRATE
     Dates: start: 2016
  18. NORCO [Concomitant]
     Active Substance: ACETAMINOPHEN\HYDROCODONE BITARTRATE
     Dates: start: 2012
  19. IPRATROPIUM [Concomitant]
     Active Substance: IPRATROPIUM
     Dates: start: 2015, end: 2016
  20. CLOPIDOGREL [Concomitant]
     Active Substance: CLOPIDOGREL BISULFATE
     Dates: start: 2016
  21. PROCARDIA [Concomitant]
     Active Substance: NIFEDIPINE
     Dates: start: 2012, end: 2016
  22. SINGULAIR [Concomitant]
     Active Substance: MONTELUKAST SODIUM
     Dates: start: 2012, end: 2016
  23. KEFLEX [Concomitant]
     Active Substance: CEPHALEXIN
     Dates: start: 2015
  24. PRILOSEC [Suspect]
     Active Substance: OMEPRAZOLE MAGNESIUM
     Indication: GASTROOESOPHAGEAL REFLUX DISEASE
     Dosage: ONCE A DAY
     Route: 048
     Dates: start: 2004
  25. PRILOSEC OTC [Suspect]
     Active Substance: OMEPRAZOLE MAGNESIUM
     Indication: GASTROOESOPHAGEAL REFLUX DISEASE
     Dosage: ONCE A DAY
     Route: 048
     Dates: end: 2016
  26. CRESTOR [Concomitant]
     Active Substance: ROSUVASTATIN CALCIUM
     Route: 048
     Dates: start: 20120104
  27. KEFLEX [Concomitant]
     Active Substance: CEPHALEXIN
     Dates: start: 2012
  28. SPIRIVA [Concomitant]
     Active Substance: TIOTROPIUM BROMIDE MONOHYDRATE
     Dates: start: 2012, end: 2014
  29. TESSALON [Concomitant]
     Active Substance: BENZONATATE
     Dates: start: 2016
  30. PREDNISONE. [Concomitant]
     Active Substance: PREDNISONE
     Dates: start: 2012, end: 2016
  31. ATACAND [Concomitant]
     Active Substance: CANDESARTAN CILEXETIL
     Dates: start: 2012, end: 2016
  32. NASONEX [Concomitant]
     Active Substance: MOMETASONE FUROATE
     Dates: start: 2012, end: 2014
  33. ISOSORBIDE MONONITRATE. [Concomitant]
     Active Substance: ISOSORBIDE MONONITRATE
     Dates: start: 2016
  34. VALTREX [Concomitant]
     Active Substance: VALACYCLOVIR HYDROCHLORIDE
     Dates: start: 2013
  35. ALBUTEROL. [Concomitant]
     Active Substance: ALBUTEROL
     Route: 048
     Dates: start: 20120104
  36. CLOPIDOGREL [Concomitant]
     Active Substance: CLOPIDOGREL BISULFATE
     Dates: start: 2016
  37. ADVAIR DISKUS [Concomitant]
     Active Substance: FLUTICASONE PROPIONATE\SALMETEROL XINAFOATE
     Dates: start: 2012, end: 2015
  38. LOSARTAN. [Concomitant]
     Active Substance: LOSARTAN
     Dates: start: 2015
  39. PROVENTIL HFA [Concomitant]
     Active Substance: ALBUTEROL SULFATE
     Dates: start: 2012, end: 2016
  40. LEVOXYL [Concomitant]
     Active Substance: LEVOTHYROXINE SODIUM
     Dates: start: 2012, end: 2016
  41. ULTRACET [Concomitant]
     Active Substance: ACETAMINOPHEN\TRAMADOL HYDROCHLORIDE
     Dates: start: 2013
  42. LIDODERM [Concomitant]
     Active Substance: LIDOCAINE
     Dates: start: 2013, end: 2014
  43. GLIPIZIDE. [Concomitant]
     Active Substance: GLIPIZIDE
     Dates: start: 2014, end: 2016
  44. ATENOLOL. [Concomitant]
     Active Substance: ATENOLOL
     Route: 048
     Dates: start: 20120104
  45. ATENOLOL. [Concomitant]
     Active Substance: ATENOLOL
     Dates: start: 2012, end: 2016
  46. DUONEB [Concomitant]
     Active Substance: ALBUTEROL SULFATE\IPRATROPIUM BROMIDE
     Dates: start: 2012, end: 2014
  47. PLAVIX [Concomitant]
     Active Substance: CLOPIDOGREL BISULFATE
     Dates: start: 2012, end: 2016
  48. BACTROBAN [Concomitant]
     Active Substance: MUPIROCIN\MUPIROCIN CALCIUM
     Dates: start: 2016
  49. KLOR-CON [Concomitant]
     Active Substance: POTASSIUM CHLORIDE
     Dates: start: 2012, end: 2016
  50. PERFOROMIST [Concomitant]
     Active Substance: FORMOTEROL FUMARATE DIHYDRATE
     Dates: start: 2012, end: 2016
  51. IMDUR [Concomitant]
     Active Substance: ISOSORBIDE MONONITRATE
     Dates: start: 2012, end: 2015
  52. ALBUTEROL. [Concomitant]
     Active Substance: ALBUTEROL
     Dates: start: 2012, end: 2016
  53. NITROSTAT [Concomitant]
     Active Substance: NITROGLYCERIN
     Dates: start: 2012, end: 2016
  54. ALLOPURINOL. [Concomitant]
     Active Substance: ALLOPURINOL
     Dates: start: 2016
  55. LYRICA [Concomitant]
     Active Substance: PREGABALIN
     Dates: start: 2013, end: 2014

REACTIONS (6)
  - Renal injury [Unknown]
  - Acute kidney injury [Recovered/Resolved]
  - Death [Fatal]
  - Rebound acid hypersecretion [Unknown]
  - Chronic kidney disease [Recovered/Resolved]
  - Renal failure [Unknown]

NARRATIVE: CASE EVENT DATE: 2011
